FAERS Safety Report 4556222-2 (Version None)
Quarter: 2005Q1

REPORT INFORMATION
  Report Type: 
  Country: None (occurrence: None)
  Receive Date: 20050103
  Receipt Date: 20040823
  Transmission Date: 20050727
  Serious: Yes (Other)
  Sender: FDA-Public Use
  Company Number: 2004UW17867

PATIENT
  Age: 68 Year
  Sex: Female
  Weight: 52.6173 kg

DRUGS (3)
  1. CRESTOR [Suspect]
     Indication: BLOOD CHOLESTEROL INCREASED
     Dosage: 5 MG DAILY
  2. CRESTOR [Suspect]
     Indication: BLOOD CHOLESTEROL INCREASED
     Dosage: 5 MG QOD
  3. MULTI-VITAMINS [Concomitant]

REACTIONS (3)
  - DYSPNOEA [None]
  - MYALGIA [None]
  - TENDERNESS [None]
